FAERS Safety Report 8186987 (Version 3)
Quarter: 2013Q1

REPORT INFORMATION
  Report Type: Spontaneous
  Country: US (occurrence: US)
  Receive Date: 20111018
  Receipt Date: 20130114
  Transmission Date: 20140127
  Serious: Yes (Hospitalization)
  Sender: FDA-Public Use
  Company Number: US-ASTRAZENECA-2011SE45091

PATIENT
  Age: 47 Year
  Sex: Female

DRUGS (2)
  1. SYMBICORT PMDI [Suspect]
     Dosage: UNKNOWN
     Route: 055
  2. NEXIUM [Suspect]
     Route: 048

REACTIONS (8)
  - Limb crushing injury [Unknown]
  - Asthma [Unknown]
  - Dyspnoea [Unknown]
  - Panic attack [Unknown]
  - Chest discomfort [Unknown]
  - Osteomyelitis [Unknown]
  - Finger deformity [Unknown]
  - Head injury [Unknown]
